FAERS Safety Report 7512603-6 (Version None)
Quarter: 2011Q2

REPORT INFORMATION
  Report Type: 
  Country: None (occurrence: None)
  Receive Date: 20110531
  Receipt Date: 20110527
  Transmission Date: 20111010
  Serious: Yes (Other)
  Sender: FDA-Public Use
  Company Number: US-PFIZER INC-2011115549

PATIENT
  Sex: Female
  Weight: 108.84 kg

DRUGS (5)
  1. LYRICA [Suspect]
     Indication: NEUROPATHY PERIPHERAL
     Dosage: 50MG ONCE
     Route: 048
     Dates: start: 20101201
  2. LYRICA [Suspect]
     Dosage: 50MG ONCE
     Dates: start: 20110501
  3. LORTAB [Concomitant]
     Indication: BACK INJURY
  4. LORTAB [Concomitant]
     Indication: PAIN IN EXTREMITY
     Dosage: UNK
  5. LORTAB [Concomitant]
     Indication: LIGAMENT RUPTURE

REACTIONS (5)
  - DIABETES MELLITUS [None]
  - INTENTIONAL DRUG MISUSE [None]
  - HALLUCINATION [None]
  - NODULE [None]
  - SOMNOLENCE [None]
